FAERS Safety Report 18291089 (Version 1)
Quarter: 2020Q3

REPORT INFORMATION
  Report Type: Spontaneous
  Country: US (occurrence: US)
  Receive Date: 20200921
  Receipt Date: 20200921
  Transmission Date: 20201103
  Serious: Yes (Other)
  Sender: FDA-Public Use
  Company Number: US-PFIZER INC-2020342171

PATIENT
  Age: 44 Year
  Sex: Female
  Weight: 58.97 kg

DRUGS (6)
  1. GENOTROPIN MQ [Suspect]
     Active Substance: SOMATROPIN
     Indication: HYPOVITAMINOSIS
  2. TOPAMAX [Concomitant]
     Active Substance: TOPIRAMATE
     Indication: SEIZURE
     Dosage: UNK
  3. XANAX [Concomitant]
     Active Substance: ALPRAZOLAM
     Dosage: UNK
  4. TOPAMAX [Concomitant]
     Active Substance: TOPIRAMATE
     Indication: MIGRAINE
  5. GENOTROPIN MQ [Suspect]
     Active Substance: SOMATROPIN
     Indication: GROWTH HORMONE DEFICIENCY
     Dosage: 0.02 MG
  6. URISTAT [FEBUXOSTAT] [Concomitant]
     Dosage: UNK

REACTIONS (4)
  - Vomiting [Unknown]
  - Heart rate increased [Not Recovered/Not Resolved]
  - Therapeutic product effect incomplete [Unknown]
  - Illness [Unknown]

NARRATIVE: CASE EVENT DATE: 20200908
